FAERS Safety Report 9333970 (Version 1)
Quarter: 2013Q2

REPORT INFORMATION
  Report Type: Spontaneous
  Country: US (occurrence: US)
  Receive Date: 20130606
  Receipt Date: 20130606
  Transmission Date: 20140414
  Serious: No
  Sender: FDA-Public Use
  Company Number: US-AMGEN-USASP2012083276

PATIENT
  Age: 67 Year
  Sex: Female
  Weight: 160 kg

DRUGS (7)
  1. PROLIA [Suspect]
     Indication: OSTEOPOROSIS
     Dosage: 60 MG, Q6MO
     Route: 058
     Dates: start: 20121130
  2. ADVAIR [Concomitant]
     Indication: ASTHMA
     Dosage: UNK UNK, BID
     Route: 055
  3. AMLODIPINE [Concomitant]
     Indication: HYPERTENSION
     Dosage: 10 MG, QD
     Route: 048
  4. ATORVASTATIN [Concomitant]
     Indication: HYPERLIPIDAEMIA
     Dosage: 40 MG, QHS
     Route: 048
  5. HYDROCHLOROTHIAZIDE [Concomitant]
     Indication: HYPERTENSION
     Dosage: 25 MG, QD
     Route: 048
  6. CALCIUM [Concomitant]
     Dosage: 500 MG, BID
  7. VITAMIN D3 [Concomitant]
     Dosage: 2000 UNIT, QD

REACTIONS (1)
  - Back pain [Not Recovered/Not Resolved]
